FAERS Safety Report 5072734-X (Version None)
Quarter: 2006Q3

REPORT INFORMATION
  Report Type: 
  Country: None (occurrence: None)
  Receive Date: 20060807
  Receipt Date: 20060725
  Transmission Date: 20061208
  Serious: Yes (Hospitalization)
  Sender: FDA-Public Use
  Company Number: US-JNJFOC-20060705709

PATIENT
  Sex: Female
  Weight: 58.06 kg

DRUGS (1)
  1. DURAGESIC-100 [Suspect]
     Indication: PAIN
     Route: 062

REACTIONS (3)
  - DEHYDRATION [None]
  - RESPIRATORY TRACT CONGESTION [None]
  - WEIGHT FLUCTUATION [None]
